FAERS Safety Report 14254214 (Version 1)
Quarter: 2017Q4

REPORT INFORMATION
  Report Type: Spontaneous
  Country: FR (occurrence: FR)
  Receive Date: 20171206
  Receipt Date: 20171206
  Transmission Date: 20180321
  Serious: Yes (Other)
  Sender: FDA-Public Use
  Company Number: FR-CONCORDIA PHARMACEUTICALS INC.-E2B_00008604

PATIENT
  Sex: Male

DRUGS (5)
  1. RAMIPRIL. [Concomitant]
     Active Substance: RAMIPRIL
  2. KARDEGIC [Concomitant]
     Active Substance: ASPIRIN DL-LYSINE
  3. PREDNISOLONE. [Suspect]
     Active Substance: PREDNISOLONE
     Dosage: ; IN TOTAL
     Route: 065
     Dates: start: 20171027, end: 20171027
  4. PREDNISOLONE. [Suspect]
     Active Substance: PREDNISOLONE
     Dosage: ; IN TOTAL
     Route: 065
     Dates: start: 20171030, end: 20171030
  5. CLOPIDOGREL [Concomitant]
     Active Substance: CLOPIDOGREL BISULFATE

REACTIONS (4)
  - Hot flush [Unknown]
  - Tremor [Unknown]
  - Cold sweat [Unknown]
  - Back pain [Unknown]
